FAERS Safety Report 4350475-1 (Version None)
Quarter: 2004Q2

REPORT INFORMATION
  Report Type: 
  Country: None (occurrence: None)
  Receive Date: 20040427
  Receipt Date: 20040415
  Transmission Date: 20050107
  Serious: Yes (Hospitalization, Other)
  Sender: FDA-Public Use
  Company Number: 2004025953

PATIENT
  Age: 25 Year
  Sex: Male
  Weight: 74.8435 kg

DRUGS (1)
  1. NEURONTIN [Suspect]
     Indication: PARTIAL SEIZURES
     Dosage: 3200 MG (FOUR TIMES A DAY), ORAL
     Route: 048

REACTIONS (6)
  - DIZZINESS [None]
  - DYSPEPSIA [None]
  - GASTRITIS FUNGAL [None]
  - HAEMORRHAGE [None]
  - NAUSEA [None]
  - TONSILLECTOMY [None]
